FAERS Safety Report 25836870 (Version 1)
Quarter: 2025Q3

REPORT INFORMATION
  Report Type: Spontaneous
  Country: CN (occurrence: CN)
  Receive Date: 20250923
  Receipt Date: 20250923
  Transmission Date: 20251020
  Serious: Yes (Hospitalization)
  Sender: PFIZER
  Company Number: CN-PFIZER INC-PV202500113480

PATIENT
  Age: 6 Year
  Sex: Male
  Weight: 19.3 kg

DRUGS (4)
  1. CYTARABINE [Suspect]
     Active Substance: CYTARABINE
     Indication: Acute lymphocytic leukaemia
     Dosage: 58.5 MG, 1X/DAY
     Route: 041
     Dates: start: 20250905, end: 20250908
  2. MERCAPTOPURINE [Suspect]
     Active Substance: MERCAPTOPURINE
     Indication: Acute lymphocytic leukaemia
     Dosage: 10 MG, 1X/DAY
     Route: 048
     Dates: start: 20250903, end: 20250909
  3. CYCLOPHOSPHAMIDE [Suspect]
     Active Substance: CYCLOPHOSPHAMIDE
     Indication: Acute lymphocytic leukaemia
     Dosage: 780 MG, 1X/DAY
     Route: 041
     Dates: start: 20250903, end: 20250903
  4. PEGASPARGASE [Concomitant]
     Active Substance: PEGASPARGASE
     Indication: Acute lymphocytic leukaemia
     Dosage: 2000 IU, 1X/DAY
     Route: 058
     Dates: start: 20250917, end: 20250917

REACTIONS (2)
  - Myelosuppression [Not Recovered/Not Resolved]
  - Hypoxia [Unknown]

NARRATIVE: CASE EVENT DATE: 20250901
